FAERS Safety Report 21269168 (Version 1)
Quarter: 2022Q3

REPORT INFORMATION
  Report Type: Other
  Country: US (occurrence: None)
  Receive Date: 20220830
  Receipt Date: 20220830
  Transmission Date: 20221027
  Serious: Yes (Other)
  Sender: FDA-Public Use
  Company Number: US-ROCHE-3165621

PATIENT
  Sex: Male
  Weight: 78.3 kg

DRUGS (4)
  1. OCREVUS [Suspect]
     Active Substance: OCRELIZUMAB
     Indication: Multiple sclerosis
     Dosage: LAST INFUSION SEP/2021?600 MG EVERY 6 MONTH INFUSE 600 MG IV OVER AT LEAST 2 HOURS EVERY 6 MONTH
     Route: 042
     Dates: start: 201803
  2. METHYLPREDNISOLONE [Concomitant]
     Active Substance: METHYLPREDNISOLONE
     Dosage: 100 MG OVER 15 TO 60 MIN PRIOR TO INFUSION
     Route: 042
  3. ACETAMINOPHEN [Concomitant]
     Active Substance: ACETAMINOPHEN
     Dosage: 30 MIN BEFORE INFUSION
     Route: 048
  4. DIPHENHYDRAMINE [Concomitant]
     Active Substance: DIPHENHYDRAMINE
     Dosage: 30 MIN PRIOR TO INFUSION
     Route: 048

REACTIONS (4)
  - Muscular weakness [Unknown]
  - Balance disorder [Unknown]
  - Urge incontinence [Unknown]
  - Multiple sclerosis [Unknown]
